FAERS Safety Report 20289743 (Version 1)
Quarter: 2022Q1

REPORT INFORMATION
  Report Type: Report from Study
  Country: CA (occurrence: CA)
  Receive Date: 20220104
  Receipt Date: 20220104
  Transmission Date: 20220424
  Serious: Yes (Other)
  Sender: FDA-Public Use
  Company Number: CA-TAKEDA-2018TUS001341

PATIENT
  Age: 65 Year
  Sex: Female

DRUGS (12)
  1. VEDOLIZUMAB [Suspect]
     Active Substance: VEDOLIZUMAB
     Indication: Crohn^s disease
     Dosage: 300 MILLIGRAM
     Route: 042
     Dates: start: 20171205
  2. VEDOLIZUMAB [Suspect]
     Active Substance: VEDOLIZUMAB
     Dosage: 300 MILLIGRAM, Q6WEEKS
     Route: 042
     Dates: start: 20180807
  3. VEDOLIZUMAB [Suspect]
     Active Substance: VEDOLIZUMAB
     Dosage: 300 MILLIGRAM, Q4WEEKS
     Route: 042
     Dates: start: 20201123
  4. VEDOLIZUMAB [Suspect]
     Active Substance: VEDOLIZUMAB
     Dosage: 300 MILLIGRAM
     Route: 042
     Dates: start: 20210520
  5. RABEPRAZOLE [Concomitant]
     Active Substance: RABEPRAZOLE
     Indication: Gastric ulcer
     Dosage: 20 MG, QD
  6. PERINDOPRIL [Concomitant]
     Active Substance: PERINDOPRIL
     Dosage: 2 MILLIGRAM
  7. CARVEDILOL [Concomitant]
     Active Substance: CARVEDILOL
     Dosage: 3.125 MILLIGRAM
  8. LORAZEPAM [Concomitant]
     Active Substance: LORAZEPAM
     Dosage: 1 MILLIGRAM
  9. PANTOPRAZOLE [Concomitant]
     Active Substance: PANTOPRAZOLE
     Dosage: 40 MILLIGRAM
  10. VITAMIN B12 [Concomitant]
     Active Substance: CYANOCOBALAMIN
     Dosage: 1000 MILLIGRAM
  11. POTASSIUM [Concomitant]
     Active Substance: POTASSIUM
     Dosage: 1500 MILLIGRAM
  12. METHYLPREDNISOLONE [Concomitant]
     Active Substance: METHYLPREDNISOLONE
     Indication: Premedication
     Dosage: 80 MILLIGRAM
     Route: 042

REACTIONS (5)
  - Nephrolithiasis [Unknown]
  - Groin pain [Recovered/Resolved]
  - Muscle spasms [Recovered/Resolved]
  - Cystitis [Unknown]
  - Off label use [Unknown]

NARRATIVE: CASE EVENT DATE: 20171231
